FAERS Safety Report 15198502 (Version 1)
Quarter: 2018Q3

REPORT INFORMATION
  Report Type: Spontaneous
  Country: US (occurrence: US)
  Receive Date: 20180627
  Receipt Date: 20180627
  Transmission Date: 20181010
  Serious: No
  Sender: FDA-Public Use
  Company Number: None

PATIENT
  Age: 59 Year
  Sex: Female

DRUGS (1)
  1. COSENTYX [Suspect]
     Active Substance: SECUKINUMAB

REACTIONS (4)
  - Psoriasis [None]
  - Drug effect incomplete [None]
  - Atypical pneumonia [None]
  - Drug dose omission [None]

NARRATIVE: CASE EVENT DATE: 20180613
